FAERS Safety Report 6432996-0 (Version None)
Quarter: 2009Q4

REPORT INFORMATION
  Report Type: 
  Country: None (occurrence: None)
  Receive Date: 20091109
  Receipt Date: 20091027
  Transmission Date: 20100525
  Serious: No
  Sender: FDA-Public Use
  Company Number: US-B.I. PHARMACEUTICALS,INC./RIDGEFIELD-2009-BP-12315BP

PATIENT
  Age: 62 Year
  Sex: Female

DRUGS (8)
  1. COMBIVENT [Suspect]
     Indication: CHRONIC OBSTRUCTIVE PULMONARY DISEASE
     Dosage: 8 PUF
     Route: 055
     Dates: start: 19990101
  2. COMBIVENT [Suspect]
     Indication: LUNG DISORDER
  3. LORTAB (HYDROCODONE) [Concomitant]
  4. PREDNISONE [Concomitant]
  5. SUGAR PILL (GLYBURIDE) [Concomitant]
  6. PROCHLORPERAZINE [Concomitant]
  7. ALENDRONATE SODIUM [Concomitant]
  8. FUROSEMIDE [Concomitant]

REACTIONS (3)
  - DYSPNOEA [None]
  - FEELING ABNORMAL [None]
  - PLEURITIC PAIN [None]
